FAERS Safety Report 9848158 (Version 2)
Quarter: 2014Q1

REPORT INFORMATION
  Report Type: Spontaneous
  Country: US (occurrence: US)
  Receive Date: 20140128
  Receipt Date: 20140319
  Transmission Date: 20141002
  Serious: No
  Sender: FDA-Public Use
  Company Number: US-PFIZER INC-2014022533

PATIENT
  Age: 54 Year
  Sex: Female
  Weight: 57.14 kg

DRUGS (6)
  1. PREMARIN [Suspect]
     Indication: OESTROGEN REPLACEMENT THERAPY
     Dosage: 1.25 MG, 1X/DAY
     Route: 048
     Dates: start: 1977
  2. PREMARIN [Suspect]
     Indication: MENOPAUSAL SYMPTOMS
     Dosage: 1.25 MG, UNK
     Dates: start: 20100114, end: 20120328
  3. LYRICA [Concomitant]
     Dosage: 100 MG, 1X/DAY
  4. NORCO [Concomitant]
     Indication: PAIN
  5. METHADONE [Concomitant]
     Indication: PAIN
     Dosage: 10 MG, 1X/DAY
  6. DICLOFENAC [Concomitant]

REACTIONS (2)
  - Feeling abnormal [Unknown]
  - Intentional drug misuse [Unknown]
